FAERS Safety Report 6403061-3 (Version None)
Quarter: 2009Q4

REPORT INFORMATION
  Report Type: 
  Country: None (occurrence: None)
  Receive Date: 20091015
  Receipt Date: 20091015
  Transmission Date: 20100525
  Serious: Yes (Other)
  Sender: FDA-Public Use
  Company Number: None

PATIENT
  Sex: Female
  Weight: 53.5244 kg

DRUGS (2)
  1. HYOMAX-SR-0.375 ARISTOS PHARM. [Suspect]
     Indication: FAECAL INCONTINENCE
     Dosage: 1 BID DAILY (TWICE) 1-2XDAY ORAL 1-MONTH 09/09/09
     Route: 048
     Dates: start: 20090909
  2. HYOMAX-SR-0.375 ARISTOS PHARM. [Suspect]
     Indication: GASTROINTESTINAL DISORDER
     Dosage: 1 BID DAILY (TWICE) 1-2XDAY ORAL 1-MONTH 09/09/09
     Route: 048
     Dates: start: 20090909

REACTIONS (1)
  - MEDICATION RESIDUE [None]
